FAERS Safety Report 4728248-7 (Version None)
Quarter: 2005Q3

REPORT INFORMATION
  Report Type: 
  Country: None (occurrence: None)
  Receive Date: 20050727
  Receipt Date: 20050715
  Transmission Date: 20060218
  Serious: Yes (Death)
  Sender: FDA-Public Use
  Company Number: HQWYE227715JUL05

PATIENT
  Age: 85 Year
  Sex: Female

DRUGS (3)
  1. OSTELUC [Suspect]
     Indication: OSTEOARTHRITIS
     Dosage: ^200 OR 400 MG/DAY FOR A TOTAL OF 200MG X 5^ ORAL
     Route: 048
     Dates: start: 20050620, end: 20050623
  2. GEFANIL            (GEFARNATE) [Concomitant]
  3. AMLODIPINE BESYLATE [Concomitant]

REACTIONS (1)
  - INTERSTITIAL LUNG DISEASE [None]
